FAERS Safety Report 14605744 (Version 1)
Quarter: 2018Q1

REPORT INFORMATION
  Report Type: Spontaneous
  Country: FR (occurrence: FR)
  Receive Date: 20180306
  Receipt Date: 20180306
  Transmission Date: 20180509
  Serious: Yes (Hospitalization)
  Sender: FDA-Public Use
  Company Number: FR-009507513-1803FRA000044

PATIENT
  Age: 85 Year
  Sex: Female
  Weight: 40.3 kg

DRUGS (7)
  1. IMOVANE [Suspect]
     Active Substance: ZOPICLONE
     Indication: PRODUCT USED FOR UNKNOWN INDICATION
     Route: 048
  2. ODRIK [Suspect]
     Active Substance: TRANDOLAPRIL
     Indication: PRODUCT USED FOR UNKNOWN INDICATION
     Route: 048
  3. LOVENOX [Concomitant]
     Active Substance: ENOXAPARIN SODIUM
  4. CALCIDOSE [Concomitant]
     Active Substance: CALCIUM CARBONATE
  5. SINEMET [Suspect]
     Active Substance: CARBIDOPA\LEVODOPA
     Indication: PRODUCT USED FOR UNKNOWN INDICATION
     Route: 048
  6. EUPANTOL [Concomitant]
     Active Substance: PANTOPRAZOLE SODIUM
  7. ALDACTAZINE [Suspect]
     Active Substance: ALTHIAZIDE\SPIRONOLACTONE
     Indication: HYPERTENSION
     Route: 048
     Dates: end: 20121210

REACTIONS (3)
  - Device dislocation [Recovered/Resolved]
  - Fall [Recovered/Resolved]
  - Hypotension [Recovered/Resolved]

NARRATIVE: CASE EVENT DATE: 20121123
